FAERS Safety Report 4735338-1 (Version None)
Quarter: 2005Q3

REPORT INFORMATION
  Report Type: 
  Country: None (occurrence: None)
  Receive Date: 20050805
  Receipt Date: 20050725
  Transmission Date: 20060218
  Serious: Yes (Hospitalization)
  Sender: FDA-Public Use
  Company Number: FR-BRISTOL-MYERS SQUIBB COMPANY-13051545

PATIENT
  Age: 8 Year
  Sex: Female
  Weight: 21 kg

DRUGS (6)
  1. AMIKLIN POWDER [Suspect]
     Indication: PROPHYLAXIS
     Route: 042
     Dates: start: 20050218, end: 20050225
  2. ZOVIRAX [Suspect]
     Indication: PROPHYLAXIS
     Dates: start: 20050216
  3. FORTUM [Suspect]
     Indication: PROPHYLAXIS
     Route: 042
     Dates: start: 20050218
  4. AMBISOME [Suspect]
     Indication: PROPHYLAXIS
     Route: 042
     Dates: start: 20050220, end: 20050224
  5. SOLU-MEDROL [Suspect]
     Indication: PROPHYLAXIS
     Dates: start: 20050205
  6. CYMEVAN [Suspect]
     Indication: PROPHYLAXIS
     Dates: start: 20050220, end: 20050222

REACTIONS (1)
  - BRADYCARDIA [None]
